FAERS Safety Report 4882963-3 (Version None)
Quarter: 2006Q1

REPORT INFORMATION
  Report Type: 
  Country: None (occurrence: None)
  Receive Date: 20060118
  Receipt Date: 20060110
  Transmission Date: 20060701
  Serious: Yes (Hospitalization)
  Sender: FDA-Public Use
  Company Number: US-BRISTOL-MYERS SQUIBB COMPANY-13242623

PATIENT
  Age: 56 Year
  Sex: Female
  Weight: 68 kg

DRUGS (7)
  1. COUMADIN [Suspect]
     Indication: PULMONARY EMBOLISM
     Dosage: MOST RECENT DOSAGE = 9 MG DAILY
     Dates: start: 19970101
  2. EFFEXOR [Concomitant]
  3. PREVACID [Concomitant]
  4. GLUCOPHAGE [Concomitant]
  5. ZOCOR [Concomitant]
  6. ULTRAM [Concomitant]
  7. CLARITIN-D [Concomitant]

REACTIONS (3)
  - CHOLECYSTECTOMY [None]
  - PROTHROMBIN TIME ABNORMAL [None]
  - PULMONARY EMBOLISM [None]
